FAERS Safety Report 9626918 (Version 2)
Quarter: 2013Q4

REPORT INFORMATION
  Report Type: Spontaneous
  Country: US (occurrence: US)
  Receive Date: 20131016
  Receipt Date: 20131211
  Transmission Date: 20140711
  Serious: Yes (Hospitalization, Other)
  Sender: FDA-Public Use
  Company Number: US-UCBSA-099856

PATIENT
  Age: 36 Year
  Sex: Female
  Weight: 52.16 kg

DRUGS (2)
  1. KEPPRA [Suspect]
     Indication: PETIT MAL EPILEPSY
     Dosage: DAILY DOSE: 500MG
  2. ZYRTEC [Concomitant]
     Indication: SEASONAL ALLERGY

REACTIONS (4)
  - Femur fracture [Recovering/Resolving]
  - Haemorrhage [Recovering/Resolving]
  - Haemoglobin decreased [Recovering/Resolving]
  - Fall [Recovering/Resolving]
